FAERS Safety Report 6982384-3 (Version None)
Quarter: 2010Q3

REPORT INFORMATION
  Report Type: 
  Country: None (occurrence: None)
  Receive Date: 20100914
  Receipt Date: 20100113
  Transmission Date: 20110219
  Serious: Yes (Hospitalization, Other)
  Sender: FDA-Public Use
  Company Number: US-PFIZER INC-2010002702

PATIENT
  Sex: Female
  Weight: 97.522 kg

DRUGS (5)
  1. LYRICA [Suspect]
     Indication: PAIN
     Dosage: 200 MG, 2X/DAY
     Route: 048
  2. LYRICA [Suspect]
     Indication: CONVULSION
  3. LYRICA [Suspect]
     Indication: PRURITUS
  4. LYRICA [Suspect]
     Indication: BURNING SENSATION
  5. INSULIN [Concomitant]
     Indication: DIABETES MELLITUS
     Dosage: UNK

REACTIONS (11)
  - CARDIAC FAILURE CONGESTIVE [None]
  - DRUG INEFFECTIVE [None]
  - FEELING ABNORMAL [None]
  - FEELING COLD [None]
  - IMPAIRED DRIVING ABILITY [None]
  - INFLAMMATION [None]
  - INSOMNIA [None]
  - IRRITABILITY [None]
  - PRURITUS [None]
  - SOMNOLENCE [None]
  - VULVOVAGINAL PRURITUS [None]
